FAERS Safety Report 23113957 (Version 1)
Quarter: 2023Q4

REPORT INFORMATION
  Report Type: Spontaneous
  Country: US (occurrence: None)
  Receive Date: 20231024
  Receipt Date: 20231024
  Transmission Date: 20240110
  Serious: Yes (Hospitalization)
  Sender: FDA-Public Use
  Company Number: None

PATIENT
  Sex: Female

DRUGS (9)
  1. TEMOZOLOMIDE [Suspect]
     Active Substance: TEMOZOLOMIDE
     Indication: Brain neoplasm malignant
     Dosage: FREQUENCY : AS DIRECTED;?
     Route: 048
     Dates: start: 202306
  2. TEMOZOLOMIDE [Suspect]
     Active Substance: TEMOZOLOMIDE
     Indication: Brain neoplasm malignant
     Dosage: FREQUENCY : AS DIRECTED;?
     Route: 048
     Dates: start: 202306
  3. PEPCID [Concomitant]
     Active Substance: FAMOTIDINE
  4. HYDRALAZINE [Concomitant]
  5. NITROGLYCERIN [Concomitant]
     Active Substance: NITROGLYCERIN
  6. HUMALOG [Concomitant]
     Active Substance: INSULIN LISPRO
  7. KEPPRA [Concomitant]
     Active Substance: LEVETIRACETAM
  8. SYNTHROID [Concomitant]
     Active Substance: LEVOTHYROXINE SODIUM
  9. AMLODIPINE [Concomitant]
     Active Substance: AMLODIPINE BESYLATE

REACTIONS (3)
  - Brain oedema [None]
  - Confusional state [None]
  - Therapy change [None]
